FAERS Safety Report 10106571 (Version 3)
Quarter: 2014Q2

REPORT INFORMATION
  Report Type: Spontaneous
  Country: US (occurrence: US)
  Receive Date: 20140424
  Receipt Date: 20140522
  Transmission Date: 20141212
  Serious: Yes (Other)
  Sender: FDA-Public Use
  Company Number: US-GILEAD-2014-0100517

PATIENT
  Sex: Male

DRUGS (4)
  1. RANEXA [Suspect]
     Indication: ANGINA PECTORIS
     Dosage: UNK
     Route: 065
  2. RANEXA [Suspect]
     Dosage: 1000 MG, BID
     Route: 065
  3. DILTIZEM [Concomitant]
  4. NITROGLYCERIN [Concomitant]
     Route: 060

REACTIONS (5)
  - Myocardial infarction [Unknown]
  - Chest pain [Recovered/Resolved]
  - Wrong technique in drug usage process [Unknown]
  - Intentional product misuse [Unknown]
  - Electrocardiogram QT prolonged [Unknown]
